FAERS Safety Report 6918207-8 (Version None)
Quarter: 2010Q3

REPORT INFORMATION
  Report Type: 
  Country: None (occurrence: None)
  Receive Date: 20100806
  Receipt Date: 20100722
  Transmission Date: 20110219
  Serious: Yes (Other)
  Sender: FDA-Public Use
  Company Number: AUR-APL-2010-01950

PATIENT
  Sex: Male

DRUGS (6)
  1. CITALOPRAM HYDROBROMIDE [Suspect]
     Dosage: 40 MG
  2. GABAPENTIN [Suspect]
     Indication: DEPRESSION
     Dosage: 530 MG
  3. ENALAPRIL [Suspect]
  4. METHADONE HCL [Suspect]
     Indication: SPINAL FRACTURE
     Dosage: 110 MG
  5. KLONOPIN [Suspect]
     Indication: SLEEP DISORDER
     Dosage: 3 MG
  6. CELEXA [Suspect]
     Dosage: 10 MG

REACTIONS (3)
  - BLOOD PRESSURE INCREASED [None]
  - CARDIAC FAILURE CONGESTIVE [None]
  - HEPATIC CIRRHOSIS [None]
